FAERS Safety Report 11541827 (Version 1)
Quarter: 2015Q3

REPORT INFORMATION
  Report Type: Spontaneous
  Country: US (occurrence: US)
  Receive Date: 20150923
  Receipt Date: 20150923
  Transmission Date: 20151125
  Serious: No
  Sender: FDA-Public Use
  Company Number: US-TARO-2014TAR00479

PATIENT
  Age: 5 Year
  Sex: Male
  Weight: 18.14 kg

DRUGS (3)
  1. VITAMINS [Concomitant]
     Active Substance: VITAMINS
  2. LORATADINE SYRUP (LORATADINE ORAL SOLUTION USP) 5MG/5ML [Suspect]
     Active Substance: LORATADINE
     Dosage: UNK
     Route: 047
     Dates: start: 20141010, end: 20141010
  3. LORATADINE SYRUP (LORATADINE ORAL SOLUTION USP) 5MG/5ML [Suspect]
     Active Substance: LORATADINE
     Indication: HYPERSENSITIVITY
     Dosage: 1 TSP, 1X/DAY
     Route: 048

REACTIONS (2)
  - Eye irritation [Recovered/Resolved]
  - Exposure via direct contact [Recovered/Resolved]

NARRATIVE: CASE EVENT DATE: 20141010
